FAERS Safety Report 15812512 (Version 1)
Quarter: 2019Q1

REPORT INFORMATION
  Report Type: Spontaneous
  Country: US (occurrence: US)
  Receive Date: 20190111
  Receipt Date: 20190111
  Transmission Date: 20190417
  Serious: No
  Sender: FDA-Public Use
  Company Number: US-ALLERGAN-1829775US

PATIENT

DRUGS (2)
  1. DALVANCE [Suspect]
     Active Substance: DALBAVANCIN
     Indication: ARTHRITIS BACTERIAL
     Dosage: 1000 MG, SINGLE
     Route: 042
  2. DALVANCE [Suspect]
     Active Substance: DALBAVANCIN
     Dosage: 500 MG, Q WEEK

REACTIONS (1)
  - Off label use [Unknown]
